FAERS Safety Report 11948566 (Version 1)
Quarter: 2016Q1

REPORT INFORMATION
  Report Type: Spontaneous
  Country: FR (occurrence: FR)
  Receive Date: 20160125
  Receipt Date: 20160125
  Transmission Date: 20160526
  Serious: Yes (Hospitalization, Other)
  Sender: FDA-Public Use
  Company Number: FR-PFIZER INC-2016032434

PATIENT
  Age: 65 Year
  Sex: Male

DRUGS (12)
  1. ATARAX [Suspect]
     Active Substance: HYDROXYZINE\HYDROXYZINE HYDROCHLORIDE
     Dosage: 25 MG, 1X/DAY
     Route: 048
     Dates: start: 20041120, end: 20141219
  2. GENTAMICINE PANPHARMA [Concomitant]
     Active Substance: GENTAMICIN
     Indication: ENDOCARDITIS
     Dosage: 400 MG, DAILY (EVERY 24 HOURS)
     Dates: start: 20141120, end: 20141224
  3. TRAMADOL. [Suspect]
     Active Substance: TRAMADOL
     Dosage: 50 MG, 4X/DAY
     Route: 048
     Dates: start: 20141120, end: 20141219
  4. KEPPRA [Concomitant]
     Active Substance: LEVETIRACETAM
     Dosage: 500 MG, 2X/DAY
     Route: 048
     Dates: start: 20141120, end: 20141219
  5. PARACETAMOL [Concomitant]
     Active Substance: ACETAMINOPHEN
     Indication: MIGRAINE
     Dosage: UNK UNK, AS NEEDED
     Dates: start: 2014, end: 2014
  6. EUPANTOL [Suspect]
     Active Substance: PANTOPRAZOLE SODIUM
     Dosage: 20 MG, 1X/DAY
     Route: 048
     Dates: start: 20141120, end: 20141219
  7. AMOXICILLINE/ACIDE CLAVULANIQUE SANDOZ [Suspect]
     Active Substance: AMOXICILLIN\CLAVULANIC ACID
     Indication: ENDOCARDITIS
     Dosage: 2G/200MG, 3G Q6HR
     Route: 042
     Dates: start: 20051120, end: 20141219
  8. BACLOFEN. [Suspect]
     Active Substance: BACLOFEN
     Dosage: 15 MG, 3X/DAY
     Route: 048
     Dates: start: 20041120, end: 20141219
  9. ISOFUNDINE [Concomitant]
     Active Substance: ACETIC ACID\CALCIUM CATION\MAGNESIUM CATION\MALIC ACID\POTASSIUM CATION\SODIUM CHLORIDE
     Dosage: 500 MG, DAILY
     Dates: start: 2014, end: 2014
  10. CEFTRIAZONA /00672201/ [Concomitant]
     Dosage: 2 G, UNK
     Dates: start: 20141120, end: 20141224
  11. IMIJECT /01044801/ [Concomitant]
     Dosage: 6/0.5 MG/ML;
     Route: 042
     Dates: start: 20141120, end: 20141219
  12. RELPAX [Concomitant]
     Active Substance: ELETRIPTAN HYDROBROMIDE
     Indication: MIGRAINE
     Dosage: UNK

REACTIONS (2)
  - Agranulocytosis [Recovered/Resolved]
  - Lymphopenia [Unknown]

NARRATIVE: CASE EVENT DATE: 20141219
